FAERS Safety Report 5627085-9 (Version None)
Quarter: 2008Q1

REPORT INFORMATION
  Report Type: 
  Country: None (occurrence: None)
  Receive Date: 20080124
  Receipt Date: 20070329
  Transmission Date: 20080703
  Serious: Yes (Hospitalization, Other)
  Sender: FDA-Public Use
  Company Number: PHEH2007US02237

PATIENT
  Age: 69 Year
  Sex: Female

DRUGS (5)
  1. SANDOSTATIN LAR [Suspect]
     Indication: CARCINOID SYNDROME
     Dosage: 30 MG TWICE MONTHLY, INJECTION NOS
     Dates: start: 20060101
  2. NORVASC [Concomitant]
  3. SOTALOL HCL [Concomitant]
  4. LABETALOL HCL [Concomitant]
  5. AVAPRO [Concomitant]

REACTIONS (3)
  - BLOOD PRESSURE INCREASED [None]
  - TRANSIENT ISCHAEMIC ATTACK [None]
  - VOMITING [None]
